FAERS Safety Report 7717871-3 (Version None)
Quarter: 2011Q3

REPORT INFORMATION
  Report Type: 
  Country: None (occurrence: None)
  Receive Date: 20110824
  Receipt Date: 20110816
  Transmission Date: 20111222
  Serious: No
  Sender: FDA-Public Use
  Company Number: 1014389

PATIENT
  Sex: Male

DRUGS (3)
  1. DIVALPROEX SODIUM [Suspect]
     Indication: SCHIZOAFFECTIVE DISORDER
     Dosage: 3500, 6 MG, ORAL
     Route: 048
  2. VANCOMYCIN HYCHLORIDE [Concomitant]
  3. MEROPENEM [Suspect]
     Indication: CELLULITIS

REACTIONS (2)
  - DRUG LEVEL BELOW THERAPEUTIC [None]
  - DRUG INTERACTION [None]
